FAERS Safety Report 4670883-9 (Version None)
Quarter: 2005Q2

REPORT INFORMATION
  Report Type: 
  Country: None (occurrence: None)
  Receive Date: 20050523
  Receipt Date: 20050511
  Transmission Date: 20051028
  Serious: Yes (Life-Threatening)
  Sender: FDA-Public Use
  Company Number: US-MERCK-0505USA01581

PATIENT
  Age: 45 Year
  Sex: Male

DRUGS (5)
  1. CANCIDAS [Suspect]
     Indication: ASPERGILLOSIS
     Route: 042
  2. VORICONAZOLE [Suspect]
     Route: 042
  3. VORICONAZOLE [Suspect]
     Route: 048
  4. ANTINEOPLASTIC (UNSPECIFIED) [Concomitant]
     Indication: ACUTE MYELOID LEUKAEMIA
     Route: 065
  5. ANTIMICROBIAL (UNSPECIFIED) [Concomitant]
     Indication: FEBRILE NEUTROPENIA
     Route: 065

REACTIONS (2)
  - ATRIOVENTRICULAR BLOCK [None]
  - DRUG INTERACTION [None]
